FAERS Safety Report 23044497 (Version 2)
Quarter: 2023Q4

REPORT INFORMATION
  Report Type: Spontaneous
  Country: US (occurrence: US)
  Receive Date: 20231009
  Receipt Date: 20231229
  Transmission Date: 20240109
  Serious: Yes (Hospitalization, Other)
  Sender: FDA-Public Use
  Company Number: US-ASTELLAS-2023US029868

PATIENT
  Age: 75 Year
  Sex: Male

DRUGS (1)
  1. PADCEV [Suspect]
     Active Substance: ENFORTUMAB VEDOTIN-EJFV
     Indication: Transitional cell carcinoma
     Dosage: UNK, CYCLIC
     Route: 065

REACTIONS (3)
  - Pyrexia [Not Recovered/Not Resolved]
  - Thrombocytopenia [Unknown]
  - Rash [Unknown]

NARRATIVE: CASE EVENT DATE: 20230101
